FAERS Safety Report 7208967-3 (Version None)
Quarter: 2010Q4

REPORT INFORMATION
  Report Type: 
  Country: None (occurrence: None)
  Receive Date: 20101222
  Receipt Date: 20101213
  Transmission Date: 20110411
  Serious: Yes (Hospitalization)
  Sender: FDA-Public Use
  Company Number: WAES 1009USA03337

PATIENT
  Age: 82 Year
  Sex: Female

DRUGS (20)
  1. TAB HYDRODIURIL (HYDROCHLOROTHIAZIDE) [Suspect]
     Dosage: PO
     Route: 048
     Dates: start: 20070406
  2. APIXABAN [Suspect]
     Indication: THROMBOSIS PROPHYLAXIS
     Dosage: 10 MG/DAILY, PO
     Route: 048
     Dates: start: 20091208
  3. WARFARIN SODIUM [Suspect]
     Indication: CEREBROVASCULAR ACCIDENT
     Dosage: 2 MG/DAILY, PO
     Route: 048
     Dates: start: 20091208
  4. WARFARIN SODIUM [Suspect]
     Indication: THROMBOSIS PROPHYLAXIS
     Dosage: 2 MG/DAILY, PO
     Route: 048
     Dates: start: 20091208
  5. PLACEBO [Suspect]
     Indication: CEREBROVASCULAR ACCIDENT
     Dosage: PO
     Route: 048
     Dates: start: 20091208
  6. PLACEBO [Suspect]
     Indication: THROMBOSIS PROPHYLAXIS
     Dosage: PO
     Route: 048
     Dates: start: 20091208
  7. CIPRALEX [Concomitant]
  8. GEMCAL CAPSULES [Concomitant]
  9. NOVOLET 30R [Concomitant]
  10. RIVOTRIL [Concomitant]
  11. AMILORIDE HYDROCHLORIDE [Concomitant]
  12. CLOPIDOGREL BISULFATE [Concomitant]
  13. DARIFENACIN HYDROBROMIDE [Concomitant]
  14. FUROSEMIDE [Concomitant]
  15. GLYBURIDE [Concomitant]
  16. LEVETIRACETAM [Concomitant]
  17. LOSARTAN POTASSIUM [Concomitant]
  18. METFORMIN HCL [Concomitant]
  19. PANTOPRAZOLE [Concomitant]
  20. PHENYTOIN [Concomitant]

REACTIONS (12)
  - CEREBROVASCULAR ACCIDENT [None]
  - CYSTITIS RADIATION [None]
  - HAEMATOCRIT DECREASED [None]
  - HAEMOGLOBIN DECREASED [None]
  - HYPONATRAEMIA [None]
  - MUSCULAR WEAKNESS [None]
  - NEUROPATHY PERIPHERAL [None]
  - PERIPHERAL SENSORIMOTOR NEUROPATHY [None]
  - RED BLOOD CELL COUNT DECREASED [None]
  - SOMNOLENCE [None]
  - URINARY RETENTION [None]
  - URINARY TRACT INFECTION [None]
